FAERS Safety Report 18914522 (Version 1)
Quarter: 2021Q1

REPORT INFORMATION
  Report Type: Spontaneous
  Country: JP (occurrence: JP)
  Receive Date: 20210219
  Receipt Date: 20210219
  Transmission Date: 20210420
  Serious: Yes (Death, Life-Threatening, Other)
  Sender: FDA-Public Use
  Company Number: JP-ACCORD-217418

PATIENT
  Age: 3 Year
  Sex: Female

DRUGS (2)
  1. CISPLATIN. [Suspect]
     Active Substance: CISPLATIN
     Indication: HEPATIC CANCER
  2. CISPLATIN. [Suspect]
     Active Substance: CISPLATIN
     Indication: METASTASES TO PERITONEUM

REACTIONS (2)
  - Renal failure [Fatal]
  - Drug ineffective [Fatal]
